FAERS Safety Report 9758086 (Version 1)
Quarter: 2013Q4

REPORT INFORMATION
  Report Type: Spontaneous
  Country: US (occurrence: US)
  Receive Date: 20131216
  Receipt Date: 20131216
  Transmission Date: 20140711
  Serious: Yes (Hospitalization)
  Sender: FDA-Public Use
  Company Number: US-TEVA-411204USA

PATIENT
  Age: 24 Year
  Sex: Female
  Weight: 99.88 kg

DRUGS (2)
  1. PARAGARD 380A [Suspect]
     Indication: CONTRACEPTION
     Route: 015
     Dates: start: 2008
  2. MICRONOR [Concomitant]
     Indication: CONTRACEPTION
     Dates: start: 20130430

REACTIONS (2)
  - Device expulsion [Not Recovered/Not Resolved]
  - Smear cervix abnormal [Not Recovered/Not Resolved]
